FAERS Safety Report 18298168 (Version 1)
Quarter: 2020Q3

REPORT INFORMATION
  Report Type: Spontaneous
  Country: CA (occurrence: CA)
  Receive Date: 20200922
  Receipt Date: 20200922
  Transmission Date: 20201105
  Serious: Yes (Congenital Anomaly)
  Sender: FDA-Public Use
  Company Number: CA-ASTRAZENECA-2020SF19206

PATIENT
  Sex: Female
  Weight: 3 kg

DRUGS (10)
  1. FERROUS SULFATE. [Suspect]
     Active Substance: FERROUS SULFATE
     Indication: MATERNAL EXPOSURE TIMING UNSPECIFIED
     Route: 064
  2. DOCUSATE SODIUM. [Suspect]
     Active Substance: DOCUSATE SODIUM
     Indication: MATERNAL EXPOSURE TIMING UNSPECIFIED
     Route: 064
  3. LEVOTHYROXINE. [Suspect]
     Active Substance: LEVOTHYROXINE
     Indication: MATERNAL EXPOSURE TIMING UNSPECIFIED
     Route: 064
  4. METHYLPHENIDATE. [Suspect]
     Active Substance: METHYLPHENIDATE
     Indication: MATERNAL EXPOSURE TIMING UNSPECIFIED
     Route: 064
  5. INSULIN [Suspect]
     Active Substance: INSULIN NOS
     Indication: MATERNAL EXPOSURE TIMING UNSPECIFIED
     Route: 064
  6. URSODEOXYCHOLIC ACID [Suspect]
     Active Substance: URSODIOL
     Indication: MATERNAL EXPOSURE TIMING UNSPECIFIED
     Route: 064
  7. DULOXETINE. [Suspect]
     Active Substance: DULOXETINE
     Indication: MATERNAL EXPOSURE TIMING UNSPECIFIED
     Route: 064
  8. OMEPRAZOLE. [Suspect]
     Active Substance: OMEPRAZOLE
     Indication: MATERNAL EXPOSURE TIMING UNSPECIFIED
     Route: 064
  9. CYCLOBENZAPRINE. [Suspect]
     Active Substance: CYCLOBENZAPRINE
     Indication: MATERNAL EXPOSURE TIMING UNSPECIFIED
     Route: 064
  10. DOMPERIDONE [Suspect]
     Active Substance: DOMPERIDONE
     Indication: MATERNAL EXPOSURE TIMING UNSPECIFIED
     Route: 064

REACTIONS (3)
  - Congenital anomaly [Unknown]
  - Exposure during pregnancy [Unknown]
  - Pulmonary malformation [Unknown]
